FAERS Safety Report 6994486-6 (Version None)
Quarter: 2010Q3

REPORT INFORMATION
  Report Type: 
  Country: None (occurrence: None)
  Receive Date: 20100917
  Receipt Date: 20100909
  Transmission Date: 20110219
  Serious: Yes (Other)
  Sender: FDA-Public Use
  Company Number: US-JNJFOC-20100904636

PATIENT
  Sex: Female
  Weight: 117.48 kg

DRUGS (11)
  1. LEVAQUIN [Suspect]
     Indication: DIVERTICULITIS
     Route: 048
  2. FLAGYL [Concomitant]
     Indication: DIVERTICULITIS
     Route: 048
  3. LISINOPRIL [Concomitant]
     Indication: HYPERTENSION
     Route: 048
  4. TOPAMAX [Concomitant]
     Indication: MIGRAINE
     Route: 048
  5. TRAZODONE HCL [Concomitant]
     Indication: MIGRAINE
     Route: 048
  6. TRAZODONE HCL [Concomitant]
     Indication: DEPRESSION
     Route: 048
  7. CYMBALTA [Concomitant]
     Indication: MIGRAINE
     Route: 048
  8. CYMBALTA [Concomitant]
     Indication: DEPRESSION
     Route: 048
  9. RITALIN-SR [Concomitant]
     Indication: ATTENTION DEFICIT/HYPERACTIVITY DISORDER
     Route: 048
  10. RELPAX [Concomitant]
     Indication: MIGRAINE
     Route: 048
  11. TYLENOL W/ CODEINE NO. 4 [Concomitant]
     Indication: MIGRAINE
     Route: 048

REACTIONS (11)
  - BACTERIAL TEST [None]
  - CHROMATURIA [None]
  - CRYSTAL URINE PRESENT [None]
  - NITRITE URINE PRESENT [None]
  - PAIN IN EXTREMITY [None]
  - PROTEIN URINE PRESENT [None]
  - RED BLOOD CELLS URINE [None]
  - URINARY SEDIMENT PRESENT [None]
  - URINE KETONE BODY PRESENT [None]
  - UROBILINOGEN URINE [None]
  - WHITE BLOOD CELLS URINE [None]
